FAERS Safety Report 6595599-3 (Version None)
Quarter: 2010Q1

REPORT INFORMATION
  Report Type: 
  Country: None (occurrence: None)
  Receive Date: 20100223
  Receipt Date: 20100105
  Transmission Date: 20100710
  Serious: Yes (Death)
  Sender: FDA-Public Use
  Company Number: US-TYCO HEALTHCARE/MALLINCKRODT-T201000362

PATIENT
  Age: 49 Year
  Sex: Female

DRUGS (6)
  1. ACETAMINOPHEN AND HYDROCODONE BITARTRATE [Suspect]
     Route: 048
  2. OXYCODONE HCL AND ACETAMINOPHEN [Suspect]
     Route: 048
  3. ETHANOL [Suspect]
     Route: 048
  4. DILTIAZEM HCL [Suspect]
     Route: 048
  5. TOPIRAMATE [Suspect]
     Route: 048
  6. CLONAZEPAM [Suspect]
     Route: 048

REACTIONS (1)
  - COMPLETED SUICIDE [None]
